FAERS Safety Report 6374694-8 (Version None)
Quarter: 2009Q3

REPORT INFORMATION
  Report Type: 
  Country: None (occurrence: None)
  Receive Date: 20090924
  Receipt Date: 20090917
  Transmission Date: 20100115
  Serious: Yes (Other)
  Sender: FDA-Public Use
  Company Number: US-JNJFOC-20090905410

PATIENT
  Sex: Female
  Weight: 113.4 kg

DRUGS (13)
  1. REMICADE [Suspect]
     Indication: PSORIATIC ARTHROPATHY
     Route: 042
     Dates: start: 20060101
  2. METFORMIN HCL [Concomitant]
     Indication: DIABETES MELLITUS
  3. LYRICA [Concomitant]
     Indication: NEUROPATHY PERIPHERAL
  4. LISINOPRIL [Concomitant]
     Indication: HYPERTENSION
  5. BYETTA [Concomitant]
     Indication: DIABETES MELLITUS
  6. LIPITOR [Concomitant]
     Indication: HYPERLIPIDAEMIA
  7. PREVACID [Concomitant]
     Indication: DYSPEPSIA
  8. VALTREX [Concomitant]
     Indication: HERPES VIRUS INFECTION
  9. PROVIGIL [Concomitant]
  10. OPANA ER [Concomitant]
  11. CELEBREX [Concomitant]
  12. PRISTIQ [Concomitant]
  13. DEPLIN [Concomitant]

REACTIONS (1)
  - CASTLEMAN'S DISEASE [None]
